FAERS Safety Report 6120689-9 (Version None)
Quarter: 2009Q1

REPORT INFORMATION
  Report Type: 
  Country: None (occurrence: None)
  Receive Date: 20090317
  Receipt Date: 20090303
  Transmission Date: 20090719
  Serious: Yes (Other)
  Sender: FDA-Public Use
  Company Number: US-ROCHE-614583

PATIENT
  Sex: Male
  Weight: 77.1 kg

DRUGS (1)
  1. CAPECITABINE [Suspect]
     Indication: COLORECTAL CANCER
     Dosage: 02 WEEKS ON AND 01 WEEKS OFF.
     Route: 048
     Dates: start: 20080919, end: 20090213

REACTIONS (2)
  - DISEASE PROGRESSION [None]
  - PRURITUS [None]
